FAERS Safety Report 8208604-5 (Version None)
Quarter: 2012Q1

REPORT INFORMATION
  Report Type: 
  Country: None (occurrence: None)
  Receive Date: 20120314
  Receipt Date: 20120309
  Transmission Date: 20120608
  Serious: Yes (Other)
  Sender: FDA-Public Use
  Company Number: IE-GLAXOSMITHKLINE-B0787616A

PATIENT
  Age: 40 Year
  Sex: Female

DRUGS (9)
  1. PANTOPRAZOLE [Concomitant]
     Indication: GASTRITIS PROPHYLAXIS
     Dosage: 40MG PER DAY
     Route: 048
  2. YASMIN [Concomitant]
     Indication: DYSMENORRHOEA
     Dosage: 1TAB PER DAY
     Route: 048
  3. FOLIC ACID [Concomitant]
     Dosage: 5MG WEEKLY
     Route: 048
  4. SEREVENT [Suspect]
     Indication: ASTHMA
     Dosage: 50MCG TWICE PER DAY
     Route: 055
     Dates: start: 20120126
  5. FERROUS GLUCONATE [Concomitant]
     Indication: ANAEMIA
     Dosage: 300MG TWICE PER DAY
     Route: 048
  6. METHOTREXATE [Concomitant]
     Indication: RHEUMATOID ARTHRITIS
     Dosage: 15MG WEEKLY
     Route: 048
  7. LIPITOR [Concomitant]
     Indication: HYPERCHOLESTEROLAEMIA
     Dosage: 10MG AT NIGHT
     Route: 048
  8. VENTOLIN [Concomitant]
     Indication: ASTHMA
     Route: 055
     Dates: start: 20110623
  9. BECLOMETHASONE DIPROPIONATE [Concomitant]
     Indication: ASTHMA
     Route: 055
     Dates: start: 20110623

REACTIONS (3)
  - CHEST DISCOMFORT [None]
  - BRONCHOSPASM PARADOXICAL [None]
  - WHEEZING [None]
